FAERS Safety Report 15785861 (Version 2)
Quarter: 2019Q1

REPORT INFORMATION
  Report Type: Spontaneous
  Country: US (occurrence: US)
  Receive Date: 20190103
  Receipt Date: 20190103
  Transmission Date: 20190417
  Serious: Yes (Hospitalization, Other)
  Sender: FDA-Public Use
  Company Number: US-SHIRE-US201849917

PATIENT
  Sex: Female

DRUGS (1)
  1. TAKHZYRO [Suspect]
     Active Substance: LANADELUMAB-FLYO
     Indication: PRODUCT USED FOR UNKNOWN INDICATION
     Dosage: UNK
     Route: 065
     Dates: start: 20181221

REACTIONS (4)
  - Hereditary angioedema [Unknown]
  - Rash generalised [Unknown]
  - Headache [Unknown]
  - Pruritus generalised [Unknown]

NARRATIVE: CASE EVENT DATE: 20181221
